FAERS Safety Report 11323647 (Version 1)
Quarter: 2015Q3

REPORT INFORMATION
  Report Type: Spontaneous
  Country: CA (occurrence: CA)
  Receive Date: 20150730
  Receipt Date: 20150730
  Transmission Date: 20151125
  Serious: Yes (Other)
  Sender: FDA-Public Use
  Company Number: US-ASTRAZENECA-2015SE72623

PATIENT
  Age: 18 Month
  Sex: Female
  Weight: 8 kg

DRUGS (1)
  1. PALIVIZUMAB [Suspect]
     Active Substance: PALIVIZUMAB
     Indication: ANTIVIRAL PROPHYLAXIS
     Route: 030

REACTIONS (3)
  - Rash maculo-papular [Recovered/Resolved]
  - Mucous membrane disorder [Recovered/Resolved]
  - Viral infection [Recovered/Resolved]
